FAERS Safety Report 6408216-X (Version None)
Quarter: 2009Q4

REPORT INFORMATION
  Report Type: 
  Country: None (occurrence: None)
  Receive Date: 20091016
  Receipt Date: 20091009
  Transmission Date: 20100525
  Serious: No
  Sender: FDA-Public Use
  Company Number: FR-EBEWE-1514PACLI09

PATIENT
  Sex: Female

DRUGS (1)
  1. PACLITAXEL [Suspect]
     Dates: start: 20090326, end: 20090326

REACTIONS (2)
  - HYPERTENSION [None]
  - PULMONARY OEDEMA [None]
